FAERS Safety Report 8604999-9 (Version None)
Quarter: 2012Q3

REPORT INFORMATION
  Report Type: 
  Country: None (occurrence: None)
  Receive Date: 20120820
  Receipt Date: 20120809
  Transmission Date: 20120928
  Serious: No
  Sender: FDA-Public Use
  Company Number: US-BAYER-2012-082073

PATIENT
  Age: 78 Year
  Sex: Female
  Weight: 58.957 kg

DRUGS (2)
  1. OSTEO BI-FLEX [Concomitant]
  2. ALEVE (CAPLET) [Suspect]
     Indication: ARTHRITIS
     Dosage: 1 DF, BID
     Route: 048
     Dates: start: 20120723

REACTIONS (1)
  - ASTHENIA [None]
